FAERS Safety Report 7537078-2 (Version None)
Quarter: 2011Q2

REPORT INFORMATION
  Report Type: 
  Country: None (occurrence: None)
  Receive Date: 20110609
  Receipt Date: 20110527
  Transmission Date: 20111010
  Serious: Yes (Hospitalization)
  Sender: FDA-Public Use
  Company Number: PHHY2011CH46646

PATIENT
  Age: 12 Year
  Sex: Male
  Weight: 36 kg

DRUGS (15)
  1. AMIKIN [Concomitant]
     Dosage: 750 MG, DAILY
     Route: 042
     Dates: start: 20110217, end: 20110309
  2. TORADOL [Concomitant]
     Dosage: UNK UKN, UNK
  3. NOVALGIN [Concomitant]
     Dosage: UNK UKN, UNK
  4. CIPROFLOXACIN [Concomitant]
     Dosage: 1000 MG, DAILY
     Dates: start: 20110311
  5. MEROPENEM [Concomitant]
     Dosage: 4.5 G DAILY
     Route: 042
     Dates: start: 20110201, end: 20110311
  6. METRONIDAZOLE [Concomitant]
     Dosage: 950 MG, DALY
     Route: 042
     Dates: start: 20110217, end: 20110301
  7. URBANYL [Concomitant]
     Dosage: 50 MG, DAILY
     Route: 048
  8. ACETAMINOPHEN [Concomitant]
     Dosage: 50 MG, DAILY
     Route: 048
     Dates: start: 20110215, end: 20110220
  9. NALBUPHINE [Concomitant]
     Dosage: 21 MG DAILY
     Route: 042
     Dates: start: 20110218, end: 20110218
  10. VANCOMYCIN [Concomitant]
     Dosage: 2000 MG, DAILY
     Route: 042
     Dates: start: 20110201, end: 20110217
  11. MORPHINE [Concomitant]
     Dosage: 0.5 MG, DAILY
     Route: 048
     Dates: start: 20110218, end: 20110218
  12. IBRUPROFEN [Concomitant]
     Dosage: 400 MG, DAILY
     Route: 048
     Dates: start: 20110218, end: 20110218
  13. TEGRETOL [Suspect]
     Dosage: 200 MG, DAILY
     Route: 048
  14. ZOFRAN [Concomitant]
     Dosage: 3.5 MG DAILY
     Route: 048
     Dates: start: 20110218, end: 20110218
  15. NIFEDIPINE [Concomitant]
     Dosage: 5 MG DAILY
     Route: 048
     Dates: start: 20110218, end: 20110218

REACTIONS (6)
  - POST PROCEDURAL INFECTION [None]
  - PSEUDOMONAS INFECTION [None]
  - STAPHYLOCOCCAL INFECTION [None]
  - NEUTROPENIA [None]
  - AGRANULOCYTOSIS [None]
  - PYREXIA [None]
